FAERS Safety Report 25915815 (Version 2)
Quarter: 2025Q4

REPORT INFORMATION
  Report Type: Spontaneous
  Country: CN (occurrence: CN)
  Receive Date: 20251013
  Receipt Date: 20251021
  Transmission Date: 20260117
  Serious: Yes (Hospitalization)
  Sender: NOVO NORDISK
  Company Number: CN-NOVOPROD-1535400

PATIENT
  Age: 64 Year
  Sex: Male
  Weight: 82.5 kg

DRUGS (4)
  1. INSULIN ASPART [Suspect]
     Active Substance: INSULIN ASPART
     Indication: Type 2 diabetes mellitus
     Dosage: 25 UNITS
  2. INSULIN ASPART [Suspect]
     Active Substance: INSULIN ASPART
     Dosage: 30 UNITS
  3. INSULIN ASPART [Suspect]
     Active Substance: INSULIN ASPART
     Dosage: 35 UNITS
     Dates: end: 202505
  4. INSULIN GLARGINE [Concomitant]
     Active Substance: INSULIN GLARGINE
     Indication: Type 2 diabetes mellitus
     Dosage: 33 IU, QD (BED TIME)
     Route: 058

REACTIONS (3)
  - Angiopathy [Recovered/Resolved]
  - Peripheral swelling [Recovered/Resolved]
  - Glycosylated haemoglobin increased [Unknown]

NARRATIVE: CASE EVENT DATE: 20250401
